FAERS Safety Report 16314861 (Version 1)
Quarter: 2019Q2

REPORT INFORMATION
  Report Type: Report from Study
  Country: US (occurrence: US)
  Receive Date: 20190515
  Receipt Date: 20190515
  Transmission Date: 20190711
  Serious: Yes (Other)
  Sender: FDA-Public Use
  Company Number: US-PFIZER INC-2019080555

PATIENT
  Age: 62 Year
  Sex: Female

DRUGS (1)
  1. XELJANZ XR [Suspect]
     Active Substance: TOFACITINIB CITRATE
     Indication: PSORIATIC ARTHROPATHY
     Dosage: 11 MG, ONCE DAILY
     Route: 048
     Dates: start: 201807, end: 201904

REACTIONS (11)
  - Stress [Unknown]
  - Pre-existing condition improved [Unknown]
  - Psoriasis [Not Recovered/Not Resolved]
  - Colitis [Unknown]
  - Condition aggravated [Unknown]
  - Arthralgia [Unknown]
  - Abscess intestinal [Unknown]
  - Therapeutic response unexpected [Unknown]
  - Urinary tract infection [Not Recovered/Not Resolved]
  - Pain in extremity [Unknown]
  - Sleep disorder [Unknown]

NARRATIVE: CASE EVENT DATE: 201903
